FAERS Safety Report 16794876 (Version 1)
Quarter: 2019Q3

REPORT INFORMATION
  Report Type: Spontaneous
  Country: US (occurrence: US)
  Receive Date: 20190719
  Receipt Date: 20190719
  Transmission Date: 20191005
  Serious: Yes (Death, Hospitalization)
  Sender: FDA-Public Use
  Company Number: None

PATIENT

DRUGS (1)
  1. LISINOPRIL. [Suspect]
     Active Substance: LISINOPRIL
     Dates: start: 20190620, end: 20190623

REACTIONS (3)
  - Cardiac arrest [None]
  - Angioedema [None]
  - Throat irritation [None]

NARRATIVE: CASE EVENT DATE: 20190620
